FAERS Safety Report 5236940-3 (Version None)
Quarter: 2007Q1

REPORT INFORMATION
  Report Type: 
  Country: None (occurrence: None)
  Receive Date: 20070213
  Receipt Date: 20070208
  Transmission Date: 20070707
  Serious: Yes (Death, Life-Threatening, Hospitalization)
  Sender: FDA-Public Use
  Company Number: PHHO2006JP18062

PATIENT
  Age: 51 Year
  Sex: Female
  Weight: 39 kg

DRUGS (10)
  1. CHI 621 [Suspect]
     Indication: RENAL TRANSPLANT
     Dosage: 20 MG (DAY 0)
     Route: 042
     Dates: start: 20060912, end: 20060912
  2. CHI 621 [Suspect]
     Dosage: 20 MG (DAY 4)
     Route: 042
     Dates: start: 20060916, end: 20060916
  3. MEDROL [Concomitant]
     Indication: RENAL TRANSPLANT
     Dosage: 40 MG /DAILY
     Route: 048
     Dates: start: 20060914, end: 20060920
  4. RITUXAN [Concomitant]
     Indication: RENAL TRANSPLANT
     Dosage: 300 MG
     Route: 042
     Dates: start: 20060920, end: 20060920
  5. NEORAL [Concomitant]
     Indication: RENAL TRANSPLANT
     Dosage: 250 MG, BID
     Route: 048
     Dates: start: 20060904, end: 20060921
  6. SANDIMMUNE [Concomitant]
     Indication: RENAL TRANSPLANT
     Dosage: 80 MG - 48 MG DAILY
     Route: 042
     Dates: start: 20060912, end: 20060925
  7. CELLCEPT [Suspect]
     Indication: RENAL TRANSPLANT
     Dosage: 750 MG DAILY
     Route: 048
     Dates: start: 20060915, end: 20060920
  8. CELLCEPT [Suspect]
     Dosage: 750 MG DAILY
     Route: 048
     Dates: start: 20060904, end: 20060911
  9. SPANIDIN [Suspect]
     Dosage: 200 MG
     Route: 042
     Dates: start: 20060912, end: 20060914
  10. SOLU-MEDROL [Concomitant]
     Indication: RENAL TRANSPLANT
     Dosage: 250 MG
     Route: 042
     Dates: start: 20060912, end: 20060923

REACTIONS (6)
  - CEREBRAL HAEMORRHAGE [None]
  - LOSS OF CONSCIOUSNESS [None]
  - MUSCLE RIGIDITY [None]
  - PLATELET COUNT DECREASED [None]
  - RESPIRATORY ARREST [None]
  - SURGERY [None]
